FAERS Safety Report 14405240 (Version 4)
Quarter: 2018Q1

REPORT INFORMATION
  Report Type: Spontaneous
  Country: NL (occurrence: NL)
  Receive Date: 20180118
  Receipt Date: 20180202
  Transmission Date: 20180509
  Serious: Yes (Congenital Anomaly)
  Sender: FDA-Public Use
  Company Number: NL-CONCORDIA PHARMACEUTICALS INC.-E2B_00009459

PATIENT

DRUGS (3)
  1. PROGRAFT (TACROLIMUS) CAPSULE 1 MG (MILLIGRAM) [Suspect]
     Active Substance: TACROLIMUS
     Indication: RENAL TRANSPLANT
     Dosage: 2DD2MG
  2. PREDNISOLONE. [Suspect]
     Active Substance: PREDNISOLONE
     Indication: RENAL TRANSPLANT
     Dosage: 1PERDAG 5 MG
  3. AZATHIOPRINE TABLET 100 MG (MILLIGRAM) [Suspect]
     Active Substance: AZATHIOPRINE
     Indication: RENAL TRANSPLANT
     Dosage: 1DD

REACTIONS (1)
  - Talipes [Not Recovered/Not Resolved]
